FAERS Safety Report 13473195 (Version 1)
Quarter: 2017Q2

REPORT INFORMATION
  Report Type: Spontaneous
  Country: US (occurrence: US)
  Receive Date: 20170424
  Receipt Date: 20170424
  Transmission Date: 20170830
  Serious: Yes (Other)
  Sender: FDA-Public Use
  Company Number: US-ASTELLAS-2016US019835

PATIENT
  Age: 60 Year
  Sex: Male

DRUGS (1)
  1. LEXISCAN [Suspect]
     Active Substance: REGADENOSON
     Indication: SCAN MYOCARDIAL PERFUSION
     Dosage: 0.4 MG, UNKNOWN FREQ.
     Route: 065
     Dates: start: 20160215, end: 20160215

REACTIONS (4)
  - Bronchospasm [Recovered/Resolved]
  - Muscular weakness [Recovered/Resolved]
  - Anal incontinence [Recovered/Resolved]
  - Syncope [Recovered/Resolved]

NARRATIVE: CASE EVENT DATE: 20160215
